FAERS Safety Report 23241008 (Version 2)
Quarter: 2023Q4

REPORT INFORMATION
  Report Type: Report from Study
  Country: US (occurrence: None)
  Receive Date: 20231129
  Receipt Date: 20231206
  Transmission Date: 20240109
  Serious: Yes (Other)
  Sender: FDA-Public Use
  Company Number: 2023A266763

PATIENT
  Age: 28264 Day
  Sex: Male
  Weight: 80.3 kg

DRUGS (2)
  1. TEZSPIRE [Suspect]
     Active Substance: TEZEPELUMAB-EKKO
     Indication: Asthma-chronic obstructive pulmonary disease overlap syndrome
     Route: 058
     Dates: start: 20230606
  2. ESOMEPRAZOLE [Suspect]
     Active Substance: ESOMEPRAZOLE
     Route: 048
     Dates: start: 20230131

REACTIONS (14)
  - Drug ineffective [Unknown]
  - Obstructive airways disorder [Unknown]
  - Asthma [Unknown]
  - Dyspnoea exertional [Unknown]
  - Dyspnoea [Unknown]
  - Upper-airway cough syndrome [Unknown]
  - Oedema peripheral [Unknown]
  - Atelectasis [Unknown]
  - Bronchial wall thickening [Unknown]
  - Chest discomfort [Unknown]
  - Productive cough [Unknown]
  - Gait disturbance [Unknown]
  - Cough [Unknown]
  - Eosinophil count abnormal [Unknown]

NARRATIVE: CASE EVENT DATE: 20230709
